FAERS Safety Report 10095495 (Version 1)
Quarter: 2014Q2

REPORT INFORMATION
  Report Type: Spontaneous
  Country: FR (occurrence: FR)
  Receive Date: 20140422
  Receipt Date: 20140422
  Transmission Date: 20141212
  Serious: Yes (Other)
  Sender: FDA-Public Use
  Company Number: FR-PFIZER INC-2014105945

PATIENT
  Age: 77 Year
  Sex: Male

DRUGS (9)
  1. LYRICA [Suspect]
     Indication: NEURALGIA
     Dosage: UNK
     Route: 048
     Dates: start: 20140315, end: 20140320
  2. AVASTIN [Concomitant]
     Dosage: UNK
     Dates: start: 201310
  3. CORDARONE [Concomitant]
  4. INEXIUM /01479302/ [Concomitant]
  5. CRESTOR [Concomitant]
  6. DIFFU K [Concomitant]
  7. DOLIPRANE [Concomitant]
  8. LOVENOX [Concomitant]
  9. BICALAN [Concomitant]

REACTIONS (4)
  - Convulsion [Recovered/Resolved]
  - Fall [Unknown]
  - Head injury [Unknown]
  - Sepsis [Unknown]
